FAERS Safety Report 7361018-2 (Version None)
Quarter: 2011Q1

REPORT INFORMATION
  Report Type: 
  Country: None (occurrence: None)
  Receive Date: 20110318
  Receipt Date: 20110302
  Transmission Date: 20110831
  Serious: No
  Sender: FDA-Public Use
  Company Number: CA-ELI_LILLY_AND_COMPANY-CA201103000607

PATIENT
  Sex: Female
  Weight: 73 kg

DRUGS (15)
  1. ZYPREXA ZYDIS [Suspect]
     Dosage: 20 MG, EACH EVENING
     Route: 048
  2. RISPERDAL [Concomitant]
     Dosage: 2 MG, DAILY (1/D)
     Route: 048
  3. ZELDOX [Concomitant]
     Dosage: 80 MG, 2/D
     Route: 048
  4. ZYPREXA [Suspect]
     Dosage: 12.5 MG, DAILY (1/D)
     Route: 048
  5. ZELDOX [Concomitant]
     Dosage: 40 MG, 2/D
     Route: 048
  6. ZYPREXA ZYDIS [Suspect]
     Indication: SCHIZOPHRENIA
     Dosage: 5 MG, AS NEEDED
     Route: 048
  7. CELEXA [Concomitant]
     Dosage: 40 MG, DAILY (1/D)
     Route: 048
  8. RISPERDAL [Concomitant]
     Dosage: 3 MG, DAILY (1/D)
     Route: 048
  9. ZYPREXA [Suspect]
     Dosage: 5 MG, EACH EVENING
     Route: 048
  10. ZYPREXA [Suspect]
     Dosage: 10 MG, AS NEEDED
     Route: 030
  11. AMIODARONE HCL [Concomitant]
     Dosage: 1 D/F, UNK
  12. CELEXA [Concomitant]
     Dosage: 20 MG, DAILY (1/D)
     Route: 048
  13. ZYPREXA [Suspect]
     Dosage: 2.5 MG, EACH EVENING
  14. ZYPREXA [Suspect]
     Indication: SCHIZOPHRENIA
     Dosage: 2.5 MG, EACH EVENING
     Route: 048
     Dates: start: 20040923
  15. ATIVAN [Concomitant]
     Dosage: 0.5 MG, AS NEEDED
     Route: 048

REACTIONS (9)
  - OVERDOSE [None]
  - BLOOD PROLACTIN INCREASED [None]
  - HYPERGLYCAEMIA [None]
  - WEIGHT INCREASED [None]
  - GALACTORRHOEA [None]
  - AMENORRHOEA [None]
  - INTENTIONAL DRUG MISUSE [None]
  - DIABETES MELLITUS [None]
  - ANAEMIA [None]
